FAERS Safety Report 10385764 (Version 1)
Quarter: 2014Q3

REPORT INFORMATION
  Report Type: Spontaneous
  Country: US (occurrence: US)
  Receive Date: 20140814
  Receipt Date: 20140814
  Transmission Date: 20150326
  Serious: No
  Sender: FDA-Public Use
  Company Number: US-009507513-1408USA008858

PATIENT

DRUGS (1)
  1. INVANZ [Suspect]
     Active Substance: ERTAPENEM SODIUM
     Indication: BRAIN EMPYEMA
     Dosage: 1 G, Q24H
     Dates: start: 20140810

REACTIONS (1)
  - Central nervous system infection [Unknown]

NARRATIVE: CASE EVENT DATE: 2014
